FAERS Safety Report 22168098 (Version 2)
Quarter: 2023Q2

REPORT INFORMATION
  Report Type: Report from Study
  Country: US (occurrence: US)
  Receive Date: 20230403
  Receipt Date: 20230525
  Transmission Date: 20230722
  Serious: Yes (Hospitalization, Other)
  Sender: FDA-Public Use
  Company Number: US-BIOVITRUM-2022-US-10553

PATIENT
  Age: 11 Year
  Sex: Female

DRUGS (3)
  1. KINERET [Suspect]
     Active Substance: ANAKINRA
     Indication: Polychondritis
     Dosage: 100 MG DAILY
     Route: 058
     Dates: start: 20220817
  2. KINERET [Suspect]
     Active Substance: ANAKINRA
     Dosage: 150 MG DAILY
     Route: 058
     Dates: start: 202208
  3. KINERET [Suspect]
     Active Substance: ANAKINRA
     Dosage: 150 MG DAILY
     Route: 058
     Dates: start: 20220817

REACTIONS (16)
  - COVID-19 [Unknown]
  - Polychondritis [Unknown]
  - Condition aggravated [Unknown]
  - Off label use [Unknown]
  - Respiratory syncytial virus infection [Unknown]
  - Pruritus [Unknown]
  - Erythema [Unknown]
  - Syringe issue [Unknown]
  - Illness [Unknown]
  - Drug ineffective [Unknown]
  - Therapy change [Unknown]
  - Insomnia [Unknown]
  - Agitation [Unknown]
  - Abnormal dreams [Unknown]
  - Heart rate increased [Unknown]
  - Throat tightness [Unknown]

NARRATIVE: CASE EVENT DATE: 20220817
